FAERS Safety Report 11119270 (Version 17)
Quarter: 2017Q4

REPORT INFORMATION
  Report Type: Spontaneous
  Country: US (occurrence: US)
  Receive Date: 20150518
  Receipt Date: 20171108
  Transmission Date: 20180320
  Serious: Yes (Hospitalization, Other)
  Sender: FDA-Public Use
  Company Number: US-PFIZER INC-2015162888

PATIENT
  Age: 66 Year
  Sex: Female
  Weight: 80 kg

DRUGS (14)
  1. IBRANCE [Suspect]
     Active Substance: PALBOCICLIB
     Dosage: 100 MG, CYCLIC (DAY 1-21 Q 28 DAYS)
     Route: 048
  2. IBRANCE [Suspect]
     Active Substance: PALBOCICLIB
     Dosage: 75 MG, CYCLIC (DAY 1-21 Q 28 DAYS)
     Route: 048
     Dates: start: 20150509, end: 201506
  3. IBRANCE [Suspect]
     Active Substance: PALBOCICLIB
     Dosage: 75 MG CYCLIC (DAY 1-21 Q 28 DAYS)
     Route: 048
  4. IBRANCE [Suspect]
     Active Substance: PALBOCICLIB
     Dosage: 100 MG, CYCLIC (DAY 1-21 Q 28 DAYS)
     Route: 048
  5. IBRANCE [Suspect]
     Active Substance: PALBOCICLIB
     Dosage: 100 MG, CYCLIC (DAY 1-21 Q 28 DAYS)
     Route: 048
  6. IBRANCE [Suspect]
     Active Substance: PALBOCICLIB
     Dosage: 75 MG CYCLIC (DAY 1-21 EVERY 28 DAYS)
     Route: 048
     Dates: start: 20150515
  7. IBRANCE [Suspect]
     Active Substance: PALBOCICLIB
     Dosage: 100 MG, CYCLIC (DAY 1-21, Q 28 DAYS)
     Route: 048
  8. LETROZOLE. [Suspect]
     Active Substance: LETROZOLE
  9. IBRANCE [Suspect]
     Active Substance: PALBOCICLIB
     Dosage: 75 MG CYCLIC (DAY 1-21 EVERY 28 DAYS)
     Route: 048
  10. IBRANCE [Suspect]
     Active Substance: PALBOCICLIB
     Dosage: 75 MG, CYCLIC (D1-21 Q28 DAYS)
     Route: 048
     Dates: start: 20171008
  11. IBRANCE [Suspect]
     Active Substance: PALBOCICLIB
     Indication: BREAST CANCER METASTATIC
     Dosage: 125 MG DAILY CYCLIC ( EVERY 1-28 DAYS)
     Route: 048
     Dates: start: 20150509
  12. IBRANCE [Suspect]
     Active Substance: PALBOCICLIB
     Dosage: 125 MG, CYCLIC  (DAILY EVERY 1-28 DAYS)
     Route: 048
  13. IBRANCE [Suspect]
     Active Substance: PALBOCICLIB
     Dosage: 75 MG CYCLIC (DAY 1-21 Q 28 DAYS)
     Route: 048
     Dates: start: 201606
  14. IBRANCE [Suspect]
     Active Substance: PALBOCICLIB
     Dosage: 100 MG, CYCLIC (DAY 1-21 Q 28 DAYS)
     Route: 048
     Dates: start: 20150509

REACTIONS (23)
  - Cardiac disorder [Unknown]
  - Nausea [Unknown]
  - White blood cell count decreased [Unknown]
  - Blood count abnormal [Unknown]
  - Tumour marker increased [Unknown]
  - Blood potassium decreased [Unknown]
  - Red blood cell count decreased [Unknown]
  - Bone pain [Unknown]
  - Pain in extremity [Unknown]
  - Pleural effusion [Unknown]
  - Full blood count decreased [Unknown]
  - Neoplasm progression [Unknown]
  - Cough [Unknown]
  - Pain [Unknown]
  - Pyrexia [Unknown]
  - Haemoglobin decreased [Unknown]
  - Platelet count decreased [Unknown]
  - Fatigue [Unknown]
  - Cardiac failure congestive [Unknown]
  - Neutropenia [Unknown]
  - Muscle spasms [Unknown]
  - Neuropathy peripheral [Unknown]
  - Blood magnesium decreased [Unknown]

NARRATIVE: CASE EVENT DATE: 20150918
